FAERS Safety Report 7353346-1 (Version None)
Quarter: 2011Q1

REPORT INFORMATION
  Report Type: 
  Country: None (occurrence: None)
  Receive Date: 20110315
  Receipt Date: 20110310
  Transmission Date: 20110831
  Serious: Yes (Hospitalization, Other)
  Sender: FDA-Public Use
  Company Number: US-BRISTOL-MYERS SQUIBB COMPANY-15535917

PATIENT
  Age: 64 Year
  Sex: Male
  Weight: 46 kg

DRUGS (4)
  1. CARBOPLATIN [Suspect]
     Indication: NON-SMALL CELL LUNG CANCER
     Dosage: RECENT INF ON 23JUL09
     Route: 042
     Dates: start: 20090701
  2. PACLITAXEL [Suspect]
     Indication: NON-SMALL CELL LUNG CANCER
     Dosage: RECENT INF ON 23JUL09
     Route: 042
     Dates: start: 20090701
  3. METFORMIN [Concomitant]
  4. MORPHINE [Concomitant]

REACTIONS (4)
  - ANAL ABSCESS [None]
  - SYNCOPE [None]
  - NEUTROPENIA [None]
  - CELLULITIS [None]
